FAERS Safety Report 4622294-X (Version None)
Quarter: 2005Q1

REPORT INFORMATION
  Report Type: 
  Country: None (occurrence: None)
  Receive Date: 20050328
  Receipt Date: 20050316
  Transmission Date: 20050727
  Serious: No
  Sender: FDA-Public Use
  Company Number: 2005046928

PATIENT
  Sex: Male

DRUGS (1)
  1. SULPERAZONE (SULBACTONE, CEFOPERAZONE) [Suspect]
     Indication: PNEUMONIA
     Dosage: INTRAVENOUS
     Route: 042

REACTIONS (1)
  - THROMBOCYTOPENIA [None]
